FAERS Safety Report 10419400 (Version 1)
Quarter: 2014Q2

REPORT INFORMATION
  Report Type: Spontaneous
  Country: US (occurrence: None)
  Receive Date: 20140627
  Receipt Date: 20140627
  Transmission Date: 20141212
  Serious: Yes (Hospitalization)
  Sender: FDA-Public Use
  Company Number: PHEH2013US024106

PATIENT
  Age: 58 Year
  Sex: Female

DRUGS (3)
  1. HYDROCHLOROTHIAZIDE\VALSARTAN [Suspect]
     Dosage: 1 DF (80/12.5 MG)
  2. LEVAQUIN (LEVOFLOXACIN) [Concomitant]
  3. TYLENOL (PARACETAMOL) [Concomitant]

REACTIONS (5)
  - Blood pressure increased [None]
  - Viral infection [None]
  - Stress [None]
  - Hypotension [None]
  - Drug ineffective [None]
